FAERS Safety Report 12555706 (Version 1)
Quarter: 2016Q3

REPORT INFORMATION
  Report Type: Spontaneous
  Country: US (occurrence: None)
  Receive Date: 20160713
  Receipt Date: 20160713
  Transmission Date: 20161109
  Serious: Yes (Hospitalization)
  Sender: FDA-Public Use
  Company Number: None

PATIENT
  Age: 67 Year
  Sex: Male
  Weight: 75.2 kg

DRUGS (1)
  1. QUETIAPINE. [Suspect]
     Active Substance: QUETIAPINE
     Route: 048
     Dates: start: 20141206, end: 20141207

REACTIONS (5)
  - Seizure [None]
  - Syncope [None]
  - Bradycardia [None]
  - Fall [None]
  - Head injury [None]

NARRATIVE: CASE EVENT DATE: 20141207
